FAERS Safety Report 21909994 (Version 1)
Quarter: 2023Q1

REPORT INFORMATION
  Report Type: Spontaneous
  Country: GB (occurrence: GB)
  Receive Date: 20230125
  Receipt Date: 20230125
  Transmission Date: 20230417
  Serious: Yes (Death)
  Sender: FDA-Public Use
  Company Number: GB-JNJFOC-20230138894

PATIENT
  Age: 51 Year
  Sex: Female
  Weight: 75 kg

DRUGS (4)
  1. ACETAMINOPHEN [Suspect]
     Active Substance: ACETAMINOPHEN
     Indication: Product used for unknown indication
     Dosage: AS A SINGLE DOSE AFTER INJECTIONS, AND 6 HOURS LATER, IF NECESSARY. 120MG/5ML PAEDIATRIC.100 ML.
     Route: 048
     Dates: start: 20230109
  2. METHOTREXATE [Concomitant]
     Active Substance: METHOTREXATE
     Indication: Product used for unknown indication
     Dosage: DO NOT PRESCRIBE, HOSPITAL ONLY
     Route: 065
     Dates: start: 20221215
  3. MESALAMINE [Concomitant]
     Active Substance: MESALAMINE
     Indication: Hypothyroidism
     Route: 065
     Dates: start: 20221027, end: 20221125
  4. ACETAMINOPHEN [Concomitant]
     Active Substance: ACETAMINOPHEN
     Indication: Product used for unknown indication
     Dosage: ONE TO BE TAKEN EVERY 4-6 HOURS UP TO FOUR TIMES A DAY
     Route: 065
     Dates: start: 20221115

REACTIONS (2)
  - Anaphylactic reaction [Fatal]
  - Product administered to patient of inappropriate age [Fatal]

NARRATIVE: CASE EVENT DATE: 20230109
